FAERS Safety Report 8112112-X (Version None)
Quarter: 2012Q1

REPORT INFORMATION
  Report Type: 
  Country: None (occurrence: None)
  Receive Date: 20120203
  Receipt Date: 20120127
  Transmission Date: 20120608
  Serious: Yes (Other)
  Sender: FDA-Public Use
  Company Number: US-PFIZER INC-2011301693

PATIENT
  Sex: Female
  Weight: 71.202 kg

DRUGS (10)
  1. SELENIUM [Concomitant]
     Dosage: UNK
  2. LYRICA [Suspect]
     Indication: PAIN
     Dosage: 50 MG, 2X/DAY
     Route: 048
     Dates: start: 20111209, end: 20111211
  3. PREVACID [Concomitant]
     Dosage: 30 MG, UNK
  4. CALCIUM WITH VITAMIN D [Concomitant]
     Dosage: UNK
  5. PREDNISONE [Concomitant]
     Dosage: 8 MG, 1X/DAY
  6. ALBUTEROL [Concomitant]
     Indication: ASTHMA
     Dosage: UNK
  7. FOSAMAX [Concomitant]
     Dosage: UNK
  8. LYRICA [Suspect]
     Indication: CHEST PAIN
     Dosage: 75 MG, 3X/DAY
     Route: 048
     Dates: start: 20111209, end: 20111212
  9. SYNTHROID [Concomitant]
     Dosage: 50 MCG, UNK
  10. CALCIUM [Concomitant]
     Dosage: UNK

REACTIONS (4)
  - SWELLING FACE [None]
  - THROAT TIGHTNESS [None]
  - APHAGIA [None]
  - MYALGIA [None]
